FAERS Safety Report 23149802 (Version 1)
Quarter: 2023Q4

REPORT INFORMATION
  Report Type: Spontaneous
  Country: US (occurrence: US)
  Receive Date: 20231106
  Receipt Date: 20231106
  Transmission Date: 20240110
  Serious: No
  Sender: FDA-Public Use
  Company Number: US-BAYER-2023A154468

PATIENT
  Age: 71 Year
  Sex: Male

DRUGS (5)
  1. RIOCIGUAT [Suspect]
     Active Substance: RIOCIGUAT
     Indication: Pulmonary hypertension
     Dosage: 1 MG, TID
     Dates: start: 20231004, end: 20231025
  2. UPTRAVI [Concomitant]
     Active Substance: SELEXIPAG
  3. OPSUMIT [Concomitant]
     Active Substance: MACITENTAN
  4. GABAPENTIN [Concomitant]
     Active Substance: GABAPENTIN
     Dosage: 900 MG, QD
  5. VICTOZA [Concomitant]
     Active Substance: LIRAGLUTIDE

REACTIONS (8)
  - Feeling abnormal [None]
  - Fatigue [None]
  - Gait disturbance [None]
  - Dyspnoea [None]
  - Orthostatic hypotension [None]
  - Chest discomfort [None]
  - Abdominal discomfort [None]
  - Hypotension [None]

NARRATIVE: CASE EVENT DATE: 20231025
